FAERS Safety Report 12535355 (Version 3)
Quarter: 2016Q3

REPORT INFORMATION
  Report Type: Spontaneous
  Country: US (occurrence: US)
  Receive Date: 20160707
  Receipt Date: 20160808
  Transmission Date: 20161109
  Serious: No
  Sender: FDA-Public Use
  Company Number: US-BEH-2016058228

PATIENT
  Sex: Female

DRUGS (25)
  1. HIZENTRA [Suspect]
     Active Substance: HUMAN IMMUNOGLOBULIN G
     Indication: IMMUNODEFICIENCY COMMON VARIABLE
     Route: 058
     Dates: start: 20100830
  2. NASONEX [Concomitant]
     Active Substance: MOMETASONE FUROATE
  3. PULMICORT TURBUHALER [Concomitant]
     Active Substance: BUDESONIDE
  4. CYCLOBENZAPRINE [Concomitant]
     Active Substance: CYCLOBENZAPRINE
  5. FUROSEMIDE. [Concomitant]
     Active Substance: FUROSEMIDE
  6. EPIPEN [Concomitant]
     Active Substance: EPINEPHRINE
  7. SUDAFED [Concomitant]
     Active Substance: PSEUDOEPHEDRINE HYDROCHLORIDE
  8. XOPENEX [Concomitant]
     Active Substance: LEVALBUTEROL HYDROCHLORIDE
  9. MULTIVITAMIN [Concomitant]
     Active Substance: VITAMINS
  10. IBUPROFEN. [Concomitant]
     Active Substance: IBUPROFEN
  11. SINGULAIR [Concomitant]
     Active Substance: MONTELUKAST SODIUM
  12. VITAMIN D [Concomitant]
     Active Substance: CHOLECALCIFEROL
  13. ROBITUSSIN (GUAIFENESIN) [Concomitant]
     Active Substance: GUAIFENESIN
  14. DIPHENHYDRAMINE. [Concomitant]
     Active Substance: DIPHENHYDRAMINE
  15. BENAZEPRIL [Concomitant]
     Active Substance: BENAZEPRIL HYDROCHLORIDE
  16. AMLODIPINE [Concomitant]
     Active Substance: AMLODIPINE BESYLATE
  17. NEXIUM [Concomitant]
     Active Substance: ESOMEPRAZOLE MAGNESIUM
  18. ALBUTEROL. [Concomitant]
     Active Substance: ALBUTEROL
  19. ATROVENT [Concomitant]
     Active Substance: IPRATROPIUM BROMIDE
  20. VITAMIN C [Concomitant]
     Active Substance: ASCORBIC ACID
  21. LEXAPRO [Concomitant]
     Active Substance: ESCITALOPRAM OXALATE
  22. DOMPERIDONE [Concomitant]
     Active Substance: DOMPERIDONE
  23. ARMOUR THYROID [Concomitant]
     Active Substance: THYROID, PORCINE
  24. CLONAZEPAM. [Concomitant]
     Active Substance: CLONAZEPAM
  25. ACIDOPHILUS [Concomitant]
     Active Substance: LACTOBACILLUS ACIDOPHILUS

REACTIONS (1)
  - Bronchitis [Unknown]

NARRATIVE: CASE EVENT DATE: 20151117
